FAERS Safety Report 7530976-5 (Version None)
Quarter: 2011Q2

REPORT INFORMATION
  Report Type: 
  Country: None (occurrence: None)
  Receive Date: 20110531
  Receipt Date: 20110516
  Transmission Date: 20111010
  Serious: Yes (Life-Threatening, Hospitalization)
  Sender: FDA-Public Use
  Company Number: 2011MA005953

PATIENT
  Age: 26 Year
  Sex: Male
  Weight: 60 kg

DRUGS (1)
  1. LIDOCAINE [Suspect]
     Indication: NASAL SEPTAL OPERATION
     Dosage: 30 ML

REACTIONS (9)
  - UNRESPONSIVE TO STIMULI [None]
  - RESPIRATORY ARREST [None]
  - VENTRICULAR EXTRASYSTOLES [None]
  - PULSE ABSENT [None]
  - PERIPHERAL COLDNESS [None]
  - VENTRICULAR TACHYCARDIA [None]
  - SINUS TACHYCARDIA [None]
  - CARDIAC ARREST [None]
  - PALLOR [None]
